FAERS Safety Report 18871004 (Version 2)
Quarter: 2021Q1

REPORT INFORMATION
  Report Type: Spontaneous
  Country: JP (occurrence: JP)
  Receive Date: 20210210
  Receipt Date: 20210212
  Transmission Date: 20210420
  Serious: Yes (Other)
  Sender: FDA-Public Use
  Company Number: JP-ORION CORPORATION ORION PHARMA-ENTC2021-0034

PATIENT
  Sex: Male

DRUGS (2)
  1. STALEVO [Suspect]
     Active Substance: CARBIDOPA\ENTACAPONE\LEVODOPA
     Indication: PRODUCT USED FOR UNKNOWN INDICATION
     Route: 048
  2. ANTINEOPLASTIC AGENTS [Interacting]
     Active Substance: UNSPECIFIED INGREDIENT
     Indication: NEOPLASM PROPHYLAXIS
     Route: 065

REACTIONS (3)
  - Colon cancer [Unknown]
  - Drug interaction [Unknown]
  - Therapeutic product effect decreased [Unknown]
